FAERS Safety Report 4534454-7 (Version None)
Quarter: 2004Q4

REPORT INFORMATION
  Report Type: 
  Country: None (occurrence: None)
  Receive Date: 20041221
  Receipt Date: 20041221
  Transmission Date: 20050328
  Serious: No
  Sender: FDA-Public Use
  Company Number: None

PATIENT
  Age: 38 Year
  Sex: Female
  Weight: 93.441 kg

DRUGS (1)
  1. PARAGUARD IUD [Suspect]
     Route: 067
     Dates: start: 20001030

REACTIONS (1)
  - MEDICAL DEVICE COMPLICATION [None]
